FAERS Safety Report 11561242 (Version 1)
Quarter: 2015Q3

REPORT INFORMATION
  Report Type: Spontaneous
  Country: US (occurrence: US)
  Receive Date: 20150928
  Receipt Date: 20150928
  Transmission Date: 20151125
  Serious: No
  Sender: FDA-Public Use
  Company Number: US-009507513-1509USA013317

PATIENT

DRUGS (1)
  1. INTEGRILIN [Suspect]
     Active Substance: EPTIFIBATIDE
     Indication: THROMBOSIS
     Dosage: 0.25 - 2 UG/KG/MIN
     Route: 042

REACTIONS (1)
  - Haemorrhage [Unknown]
